FAERS Safety Report 8799246 (Version 2)
Quarter: 2013Q1

REPORT INFORMATION
  Report Type: Spontaneous
  Country: US (occurrence: US)
  Receive Date: 20120919
  Receipt Date: 20130206
  Transmission Date: 20140127
  Serious: Yes (Other)
  Sender: FDA-Public Use
  Company Number: US-BAYER-2012-095266

PATIENT
  Age: 33 Year
  Sex: Female
  Weight: 57.14 kg

DRUGS (8)
  1. MIRENA [Suspect]
     Indication: GENITAL HAEMORRHAGE
     Dosage: 20 MCG/24HR, CONT
     Route: 015
     Dates: start: 2007
  2. ATENOLOL [Concomitant]
     Indication: HYPERTENSION
     Dosage: 10 MG, QD
  3. AMLODIPINE [Concomitant]
     Indication: HYPERTENSION
     Dosage: 25 MG, QD
  4. HYDROCHLOROTHIAZIDE [Concomitant]
     Indication: HYPERTENSION
     Dosage: 25 MG, QD
  5. OPANA [Concomitant]
     Indication: PAIN
     Dosage: 20 MG, QID
  6. NORCO [Concomitant]
     Indication: PAIN
     Dosage: UNK UNK, QID
  7. AMITRIPTYLINE [Concomitant]
     Dosage: UNK
  8. COZAAR [Concomitant]
     Indication: HYPERTENSION
     Dosage: 25 MG, UNK

REACTIONS (4)
  - Genital haemorrhage [Not Recovered/Not Resolved]
  - Drug ineffective [None]
  - Vaginal haemorrhage [None]
  - Metrorrhagia [None]
